FAERS Safety Report 8803638 (Version 2)
Quarter: 2013Q3

REPORT INFORMATION
  Report Type: Spontaneous
  Country: VE (occurrence: VE)
  Receive Date: 20120924
  Receipt Date: 20130906
  Transmission Date: 20140515
  Serious: Yes (Other)
  Sender: FDA-Public Use
  Company Number: VE-GENZYME-POMP-1002432

PATIENT
  Age: 5 Year
  Sex: Male

DRUGS (1)
  1. MYOZYME [Suspect]
     Indication: GLYCOGEN STORAGE DISEASE TYPE II
     Dosage: 20 MG/KG, UNK
     Route: 042
     Dates: start: 200508

REACTIONS (3)
  - Respiratory disorder [Unknown]
  - Encephalitis viral [Unknown]
  - Epilepsy [Recovered/Resolved]
